FAERS Safety Report 7626421-1 (Version None)
Quarter: 2011Q3

REPORT INFORMATION
  Report Type: 
  Country: None (occurrence: None)
  Receive Date: 20110714
  Receipt Date: 20110629
  Transmission Date: 20111222
  Serious: Yes (Hospitalization)
  Sender: FDA-Public Use
  Company Number: TPA2011A02970

PATIENT
  Sex: Female

DRUGS (5)
  1. GLIMEPIRIDE [Suspect]
  2. ACTOS [Suspect]
  3. METFORMIN HCL [Suspect]
  4. JANUVIA [Suspect]
  5. STARLIX [Suspect]

REACTIONS (3)
  - BLOOD GLUCOSE INCREASED [None]
  - OEDEMA PERIPHERAL [None]
  - RENAL DISORDER [None]
